FAERS Safety Report 17079733 (Version 3)
Quarter: 2019Q4

REPORT INFORMATION
  Report Type: Spontaneous
  Country: DE (occurrence: DE)
  Receive Date: 20191127
  Receipt Date: 20191212
  Transmission Date: 20200122
  Serious: Yes (Hospitalization)
  Sender: FDA-Public Use
  Company Number: DE-UCBSA-2019049032

PATIENT

DRUGS (2)
  1. VIMPAT [Suspect]
     Active Substance: LACOSAMIDE
     Indication: EPILEPSY
     Dosage: 50 MILLIGRAM
  2. APYDAN [OXCARBAZEPINE] [Concomitant]
     Active Substance: OXCARBAZEPINE
     Indication: EPILEPSY

REACTIONS (1)
  - Mental impairment [Unknown]
